FAERS Safety Report 23395140 (Version 1)
Quarter: 2024Q1

REPORT INFORMATION
  Report Type: Spontaneous
  Country: JP (occurrence: JP)
  Receive Date: 20240112
  Receipt Date: 20240112
  Transmission Date: 20240410
  Serious: Yes (Hospitalization, Other)
  Sender: FDA-Public Use
  Company Number: JP-GTI-000087

PATIENT
  Age: 40 Year
  Sex: Male

DRUGS (1)
  1. PREDNISONE [Suspect]
     Active Substance: PREDNISONE
     Indication: Systemic scleroderma
     Route: 048

REACTIONS (5)
  - Scleroderma renal crisis [Recovered/Resolved]
  - Proteinuria [Not Recovered/Not Resolved]
  - Nephrotic syndrome [Unknown]
  - Therapeutic response decreased [Unknown]
  - Glomerulosclerosis [Unknown]
